FAERS Safety Report 9422359 (Version 3)
Quarter: 2013Q4

REPORT INFORMATION
  Report Type: Report from Study
  Country: US (occurrence: US)
  Receive Date: 20130726
  Receipt Date: 20131030
  Transmission Date: 20140711
  Serious: Yes (Other)
  Sender: FDA-Public Use
  Company Number: US-SANOFI-AVENTIS-2013SA075280

PATIENT
  Age: 54 Year
  Sex: Male
  Weight: 82.1 kg

DRUGS (10)
  1. AUBAGIO [Suspect]
     Indication: MULTIPLE SCLEROSIS
     Dosage: 6 MONTH
     Route: 048
     Dates: start: 20130117
  2. WELLBUTRIN [Concomitant]
     Route: 065
  3. GABAPENTIN [Concomitant]
     Route: 065
  4. BACLOFEN [Concomitant]
     Dosage: DOSE - 20MG TO 30MG
     Route: 065
  5. ANDROGEL [Concomitant]
     Route: 065
  6. ZYRTEC [Concomitant]
     Route: 065
  7. MORPHINE [Concomitant]
     Route: 065
  8. PROZAC [Concomitant]
     Route: 065
  9. NAPROXEN [Concomitant]
     Dosage: DREQUENCY - DAILY AS NEEDE.
     Route: 065
  10. CONCERTA [Concomitant]
     Route: 065

REACTIONS (4)
  - Convulsion [Unknown]
  - Pain [Not Recovered/Not Resolved]
  - Hypoaesthesia [Not Recovered/Not Resolved]
  - Paraesthesia [Not Recovered/Not Resolved]
